FAERS Safety Report 12768724 (Version 5)
Quarter: 2017Q1

REPORT INFORMATION
  Report Type: Spontaneous
  Country: US (occurrence: US)
  Receive Date: 20160921
  Receipt Date: 20170316
  Transmission Date: 20170428
  Serious: Yes (Other)
  Sender: FDA-Public Use
  Company Number: US-TEVA-693838ACC

PATIENT
  Age: 35 Year
  Sex: Female
  Weight: 67.65 kg

DRUGS (4)
  1. FLORICET [Concomitant]
     Indication: PAIN
  2. PARAGARD T 380A [Suspect]
     Active Substance: COPPER
     Indication: CONTRACEPTION
     Route: 065
     Dates: start: 20150813, end: 20160617
  3. PARAGARD T 380A [Suspect]
     Active Substance: COPPER
     Dates: start: 20161010
  4. ADVIL [Concomitant]
     Active Substance: IBUPROFEN
     Indication: PAIN

REACTIONS (1)
  - Device dislocation [Recovered/Resolved]

NARRATIVE: CASE EVENT DATE: 20160616
